FAERS Safety Report 9526760 (Version 1)
Quarter: 2013Q3

REPORT INFORMATION
  Report Type: Spontaneous
  Country: US (occurrence: US)
  Receive Date: 20130916
  Receipt Date: 20130916
  Transmission Date: 20140515
  Serious: Yes (Life-Threatening, Disabling, Other)
  Sender: FDA-Public Use
  Company Number: US-GLAXOSMITHKLINE-A1026663A

PATIENT
  Age: 64 Year
  Sex: Male
  Weight: 69.8 kg

DRUGS (6)
  1. VOTRIENT [Suspect]
     Indication: GASTROINTESTINAL CANCER METASTATIC
     Dosage: 400MG TWICE PER DAY
     Route: 048
     Dates: start: 201010, end: 20130423
  2. COREG [Concomitant]
     Dosage: 6.25MG TWICE PER DAY
     Route: 048
  3. ENALAPRIL [Concomitant]
     Dosage: 10MG TWICE PER DAY
     Route: 048
  4. MARINOL [Concomitant]
     Dosage: 2.5MG TWICE PER DAY
     Route: 048
  5. OPIUM [Concomitant]
     Dosage: .6ML FOUR TIMES PER DAY
     Route: 048
  6. NORVASC [Concomitant]
     Dates: end: 20130423

REACTIONS (17)
  - Renal failure acute [Recovering/Resolving]
  - Nephrotic syndrome [Recovering/Resolving]
  - Cardiac failure congestive [Recovered/Resolved]
  - Hypertension [Recovered/Resolved]
  - Proteinuria [Recovering/Resolving]
  - Gravitational oedema [Recovered/Resolved]
  - Swelling [Recovered/Resolved]
  - Weight increased [Not Recovered/Not Resolved]
  - Fluid retention [Recovered/Resolved]
  - Generalised oedema [Recovered/Resolved]
  - Oedema [Recovered/Resolved]
  - Fatigue [Unknown]
  - Dyspnoea [Recovered/Resolved]
  - Blood creatinine increased [Recovered/Resolved]
  - Blood parathyroid hormone increased [Recovered/Resolved]
  - Blood phosphorus increased [Recovered/Resolved]
  - Blood calcium decreased [Recovered/Resolved]
